FAERS Safety Report 8902764 (Version 2)
Quarter: 2013Q2

REPORT INFORMATION
  Report Type: Spontaneous
  Country: US (occurrence: US)
  Receive Date: 20121112
  Receipt Date: 20130510
  Transmission Date: 20140414
  Serious: Yes (Other)
  Sender: FDA-Public Use
  Company Number: US-ASTRAZENECA-2012SE84891

PATIENT
  Age: 70 Year
  Sex: Male
  Weight: 81.6 kg

DRUGS (14)
  1. CRESTOR [Suspect]
     Indication: BLOOD CHOLESTEROL ABNORMAL
     Route: 048
     Dates: start: 2010
  2. UNCOATED ASPIRIN [Suspect]
     Route: 048
  3. CO Q 10 [Suspect]
     Indication: CARDIAC DISORDER
     Route: 048
     Dates: start: 2012
  4. LIPITOR GENERIC [Suspect]
     Route: 065
  5. GEMFIBROZIL [Concomitant]
     Indication: LIVER DISORDER
     Route: 048
     Dates: start: 2010
  6. PLAVIX [Concomitant]
     Indication: ANTICOAGULANT THERAPY
     Route: 048
     Dates: start: 2010
  7. CARVEDILOL [Concomitant]
     Indication: BLOOD PRESSURE INCREASED
     Route: 048
     Dates: start: 2008
  8. MECLIZINE [Concomitant]
     Indication: VERTIGO
     Route: 048
     Dates: start: 2010
  9. GLIPIZIDE [Concomitant]
     Indication: DIABETES MELLITUS
     Route: 048
     Dates: start: 2006
  10. GLYBURIDE [Concomitant]
     Indication: DIABETES MELLITUS
     Route: 048
     Dates: start: 2005, end: 2006
  11. CIMETIDINE [Concomitant]
     Indication: DRUG INTERACTION
     Route: 048
     Dates: start: 2006
  12. PANTOPRAZOLE DELAYED SLOW RELEASE [Concomitant]
     Indication: DRUG INTERACTION
     Route: 048
     Dates: start: 2006
  13. CENTRUM SILVER WITH VITAMIN D LYPOPENE [Concomitant]
     Indication: VITAMIN SUPPLEMENTATION
     Dosage: DAILY
     Route: 048
     Dates: start: 2001
  14. KRILL OIL AND OMEGA 3 [Concomitant]
     Indication: MUSCLE DISORDER
     Route: 048
     Dates: start: 2010

REACTIONS (32)
  - Myocardial infarction [Unknown]
  - Cerebrovascular accident [Unknown]
  - Carotid artery occlusion [Unknown]
  - Renal disorder [Unknown]
  - Suicidal ideation [Unknown]
  - Prostate cancer [Unknown]
  - Blood cholesterol abnormal [Unknown]
  - Speech disorder [Unknown]
  - Muscle strain [Unknown]
  - Muscle atrophy [Unknown]
  - Motor dysfunction [Unknown]
  - Liver disorder [Unknown]
  - Balance disorder [Unknown]
  - Vertigo [Unknown]
  - Aphagia [Unknown]
  - General physical health deterioration [Unknown]
  - Exercise tolerance decreased [Unknown]
  - Thinking abnormal [Unknown]
  - Negative thoughts [Unknown]
  - Decreased appetite [Unknown]
  - Feeling abnormal [Unknown]
  - Cardiac disorder [Unknown]
  - Adverse event [Unknown]
  - Visual impairment [Unknown]
  - Pyrexia [Unknown]
  - Faecal incontinence [Unknown]
  - Muscle disorder [Unknown]
  - Myalgia [Unknown]
  - Depression [Unknown]
  - Asthenia [Unknown]
  - Decreased interest [Unknown]
  - Intentional drug misuse [Unknown]
